FAERS Safety Report 13520880 (Version 5)
Quarter: 2017Q2

REPORT INFORMATION
  Report Type: Spontaneous
  Country: CA (occurrence: CA)
  Receive Date: 20170508
  Receipt Date: 20170630
  Transmission Date: 20170830
  Serious: Yes (Other)
  Sender: FDA-Public Use
  Company Number: CA-ORION CORPORATION ORION PHARMA-TREX2017-1038

PATIENT
  Age: 42 Year
  Sex: Male
  Weight: 100 kg

DRUGS (4)
  1. INFLECTRA [Suspect]
     Active Substance: INFLIXIMAB-DYYB
     Dosage: THEN EVERY 8 WEEKS
     Route: 042
  2. METHOTREXATE (TRADE NAME UNKNOWN) [Suspect]
     Active Substance: METHOTREXATE
     Route: 065
     Dates: start: 20170201
  3. INFLECTRA [Suspect]
     Active Substance: INFLIXIMAB-DYYB
     Indication: COLITIS ULCERATIVE
     Dosage: EACH 0,2,6 WEEKS; THEN EVERY 8 WEEKS FOR 12 MONTHS
     Route: 042
     Dates: start: 20170324
  4. MESALAMINE. [Concomitant]
     Active Substance: MESALAMINE
     Route: 065
     Dates: start: 201609

REACTIONS (9)
  - Fatigue [Recovered/Resolved]
  - Pulse abnormal [Not Recovered/Not Resolved]
  - Defaecation urgency [Unknown]
  - Diarrhoea [Not Recovered/Not Resolved]
  - Haematochezia [Recovered/Resolved]
  - Headache [Recovered/Resolved]
  - Flatulence [Unknown]
  - C-reactive protein increased [Not Recovered/Not Resolved]
  - Middle insomnia [Unknown]

NARRATIVE: CASE EVENT DATE: 20170325
